FAERS Safety Report 6910694-4 (Version None)
Quarter: 2010Q3

REPORT INFORMATION
  Report Type: 
  Country: None (occurrence: None)
  Receive Date: 20100806
  Receipt Date: 20100731
  Transmission Date: 20110219
  Serious: Yes (Death, Hospitalization)
  Sender: FDA-Public Use
  Company Number: CO-ROCHE-718439

PATIENT
  Sex: Female

DRUGS (2)
  1. XELODA [Suspect]
     Indication: GASTRIC CANCER
     Dosage: FREQUENCY: QD
     Route: 048
     Dates: start: 20100429, end: 20100705
  2. HYOSCINE HBR HYT [Concomitant]
     Indication: PAIN
     Dosage: FREQUENCY: QD, DRUG REPORTED: HYOSCINE N-BUTYLBROMIDE
     Route: 048

REACTIONS (1)
  - MALIGNANT NEOPLASM PROGRESSION [None]
